FAERS Safety Report 8165425-X (Version None)
Quarter: 2012Q1

REPORT INFORMATION
  Report Type: 
  Country: None (occurrence: None)
  Receive Date: 20120227
  Receipt Date: 20120217
  Transmission Date: 20120608
  Serious: Yes (Hospitalization, Other)
  Sender: FDA-Public Use
  Company Number: US-BAYER-2011-023485

PATIENT
  Age: 22 Year
  Sex: Female
  Weight: 45.351 kg

DRUGS (7)
  1. NASONEX [Concomitant]
     Dosage: UNK UNK, BID
     Route: 045
  2. YASMIN [Suspect]
     Dosage: UNK
     Dates: start: 20060523, end: 20060605
  3. YAZ [Suspect]
     Indication: ORAL CONTRACEPTION
     Dosage: UNK
     Route: 048
     Dates: start: 20061201, end: 20070301
  4. YASMIN [Suspect]
     Indication: ORAL CONTRACEPTION
     Dosage: UNK
     Route: 048
     Dates: start: 20050101, end: 20060601
  5. LEVAQUIN [Concomitant]
     Dosage: 750 MG, DAILY X 5
     Route: 048
  6. MEDROL [Concomitant]
     Route: 048
  7. PRILOSEC [Concomitant]
     Dosage: 20 MG, UNK
     Route: 048
     Dates: start: 20060501, end: 20060529

REACTIONS (11)
  - SCAR [None]
  - DYSPEPSIA [None]
  - CHOLECYSTITIS CHRONIC [None]
  - CONSTIPATION [None]
  - GALLBLADDER DISORDER [None]
  - DIARRHOEA [None]
  - ANXIETY [None]
  - PAIN [None]
  - DEPRESSION [None]
  - ABDOMINAL DISTENSION [None]
  - FLATULENCE [None]
